FAERS Safety Report 6430261-9 (Version None)
Quarter: 2009Q4

REPORT INFORMATION
  Report Type: 
  Country: None (occurrence: None)
  Receive Date: 20091106
  Receipt Date: 20091104
  Transmission Date: 20100525
  Serious: Yes (Other)
  Sender: FDA-Public Use
  Company Number: CH-ROCHE-666429

PATIENT
  Age: 58 Year
  Sex: Male
  Weight: 58 kg

DRUGS (9)
  1. CAPECITABINE [Suspect]
     Dosage: RECEIVED TWO CYCLES
     Route: 048
     Dates: start: 20090904, end: 20091020
  2. BEVACIZUMAB [Suspect]
     Dosage: RECEIVED TWO CYCLES
     Route: 042
     Dates: start: 20090904, end: 20091020
  3. FLUOROURACIL [Concomitant]
     Dosage: RECEIVED TWO CYCLES
     Dates: start: 20090904, end: 20091020
  4. OXALIPLATIN [Concomitant]
     Dosage: RECEIVED TWO CYCLES
     Dates: start: 20090904, end: 20091020
  5. IRINOTECAN HCL [Concomitant]
     Dosage: RECEIVED TWO CYCLES
     Dates: start: 20090904, end: 20091020
  6. TRIATEC [Concomitant]
     Dates: start: 20090918
  7. SEROQUEL [Concomitant]
     Dates: start: 20090918
  8. OMEPRAZOLE [Concomitant]
     Dates: start: 20090918
  9. FENTANYL-100 [Concomitant]
     Indication: PAIN
     Dates: start: 20091009

REACTIONS (4)
  - DECREASED APPETITE [None]
  - DIARRHOEA [None]
  - MALIGNANT NEOPLASM PROGRESSION [None]
  - NAUSEA [None]
